FAERS Safety Report 8106065-8 (Version None)
Quarter: 2012Q1

REPORT INFORMATION
  Report Type: 
  Country: None (occurrence: None)
  Receive Date: 20120202
  Receipt Date: 20120130
  Transmission Date: 20120608
  Serious: No
  Sender: FDA-Public Use
  Company Number: US-PFIZER INC-2012013195

PATIENT
  Sex: Female

DRUGS (5)
  1. ALAVERT [Suspect]
     Indication: NASAL DISCOMFORT
  2. ALAVERT [Suspect]
     Indication: HYPERSENSITIVITY
  3. ALAVERT [Suspect]
  4. ALAVERT [Suspect]
     Indication: THROAT IRRITATION
     Dosage: UNK
     Route: 065
  5. ALAVERT [Suspect]
     Indication: EYE PRURITUS

REACTIONS (2)
  - DRUG INEFFECTIVE [None]
  - AGITATION [None]
